FAERS Safety Report 19865018 (Version 1)
Quarter: 2021Q3

REPORT INFORMATION
  Report Type: Spontaneous
  Country: US (occurrence: US)
  Receive Date: 20210921
  Receipt Date: 20210921
  Transmission Date: 20211014
  Serious: Yes (Hospitalization)
  Sender: FDA-Public Use
  Company Number: None

PATIENT
  Age: 74 Year
  Sex: Female
  Weight: 106 kg

DRUGS (4)
  1. BARICITINIB. [Suspect]
     Active Substance: BARICITINIB
     Indication: COVID-19 TREATMENT
     Route: 048
     Dates: start: 20210909, end: 20210919
  2. DEXAMETHASONE. [Concomitant]
     Active Substance: DEXAMETHASONE
     Dates: start: 20210909, end: 20210919
  3. ENOXAPARIN [Concomitant]
     Active Substance: ENOXAPARIN
     Dates: start: 20210909, end: 20210919
  4. REMDESIVIR. [Concomitant]
     Active Substance: REMDESIVIR
     Dates: start: 20210909, end: 20210914

REACTIONS (3)
  - Occult blood positive [None]
  - Haemoglobin decreased [None]
  - Melaena [None]

NARRATIVE: CASE EVENT DATE: 20210919
